FAERS Safety Report 20374197 (Version 1)
Quarter: 2022Q1

REPORT INFORMATION
  Report Type: Spontaneous
  Country: US (occurrence: None)
  Receive Date: 20220125
  Receipt Date: 20220125
  Transmission Date: 20220423
  Serious: Yes (Hospitalization)
  Sender: FDA-Public Use
  Company Number: None

PATIENT
  Sex: Female
  Weight: 51.4 kg

DRUGS (8)
  1. METHOTREXATE [Suspect]
     Active Substance: METHOTREXATE
     Dates: end: 20220117
  2. CYCLOPHOSPHAMIDE [Suspect]
     Active Substance: CYCLOPHOSPHAMIDE
     Dates: end: 20220110
  3. CYTARABINE [Suspect]
     Active Substance: CYTARABINE
     Dates: end: 20211202
  4. DAUNORUBICIN [Suspect]
     Active Substance: DAUNORUBICIN
     Dates: end: 20211223
  5. MERCAPTOPURINE [Concomitant]
     Active Substance: MERCAPTOPURINE
     Dates: end: 20220122
  6. ONCASPAR [Concomitant]
     Active Substance: PEGASPARGASE
     Dates: end: 20211205
  7. PREDNISOLONE [Concomitant]
     Active Substance: PREDNISOLONE
     Dates: end: 20211228
  8. VINCRISTINE SULFATE [Concomitant]
     Active Substance: VINCRISTINE SULFATE
     Dates: end: 20211223

REACTIONS (6)
  - Aphasia [None]
  - Aphasia [None]
  - Hemiplegia [None]
  - Facial paralysis [None]
  - Hemiparesis [None]
  - Trismus [None]

NARRATIVE: CASE EVENT DATE: 20220122
